FAERS Safety Report 7184576-X (Version None)
Quarter: 2010Q4

REPORT INFORMATION
  Report Type: 
  Country: None (occurrence: None)
  Receive Date: 20101222
  Receipt Date: 20101209
  Transmission Date: 20110411
  Serious: Yes (Other)
  Sender: FDA-Public Use
  Company Number: US-ELI_LILLY_AND_COMPANY-US201011003479

PATIENT
  Sex: Male

DRUGS (2)
  1. HUMALOG [Suspect]
     Indication: DIABETES MELLITUS
     Dosage: UNK, AS NEEDED
     Dates: end: 20101101
  2. HUMALOG [Suspect]
     Dosage: UNK, AS NEEDED
     Dates: start: 20101101

REACTIONS (3)
  - DEEP VEIN THROMBOSIS [None]
  - DRUG DISPENSING ERROR [None]
  - NERVOUSNESS [None]
